FAERS Safety Report 12677356 (Version 3)
Quarter: 2016Q4

REPORT INFORMATION
  Report Type: Spontaneous
  Country: US (occurrence: US)
  Receive Date: 20160823
  Receipt Date: 20161102
  Transmission Date: 20170207
  Serious: Yes (Hospitalization, Other)
  Sender: FDA-Public Use
  Company Number: US-JNJFOC-20160816330

PATIENT
  Age: 33 Year
  Sex: Male

DRUGS (2)
  1. LEVAQUIN [Suspect]
     Active Substance: LEVOFLOXACIN
     Indication: POST PROCEDURAL INFECTION
     Route: 065
  2. LEVAQUIN [Suspect]
     Active Substance: LEVOFLOXACIN
     Indication: POST PROCEDURAL INFECTION
     Route: 065
     Dates: start: 20030506, end: 20030508

REACTIONS (7)
  - Rash [Recovering/Resolving]
  - Skin disorder [Unknown]
  - Paraesthesia [Not Recovered/Not Resolved]
  - Cardiovascular disorder [Unknown]
  - Sensory disturbance [Unknown]
  - Musculoskeletal disorder [Unknown]
  - Mental disorder [Unknown]

NARRATIVE: CASE EVENT DATE: 200305
